FAERS Safety Report 11705600 (Version 2)
Quarter: 2015Q4

REPORT INFORMATION
  Report Type: Spontaneous
  Country: RU (occurrence: RU)
  Receive Date: 20151106
  Receipt Date: 20151112
  Transmission Date: 20160304
  Serious: Yes (Life-Threatening)
  Sender: FDA-Public Use
  Company Number: RU-TEVA-605961ISR

PATIENT
  Age: 53 Year
  Sex: Female
  Weight: 94 kg

DRUGS (6)
  1. DEXTROSE. [Concomitant]
     Active Substance: DEXTROSE
     Dates: start: 2013
  2. CISPLATIN-TEVA [Suspect]
     Active Substance: CISPLATIN
     Route: 042
     Dates: start: 20150824, end: 20151028
  3. SODIUM CHLORIDE. [Concomitant]
     Active Substance: SODIUM CHLORIDE
     Route: 042
     Dates: start: 2013
  4. RIBOXINUM [Concomitant]
     Route: 042
     Dates: start: 2013
  5. ASCORBIC ACID. [Concomitant]
     Active Substance: ASCORBIC ACID
     Route: 042
     Dates: start: 2013
  6. LASIX [Concomitant]
     Active Substance: FUROSEMIDE
     Route: 042
     Dates: start: 2013

REACTIONS (9)
  - Angioedema [Recovered/Resolved]
  - Peripheral swelling [Recovered/Resolved]
  - Loss of consciousness [Recovered/Resolved]
  - Swelling face [Recovered/Resolved]
  - Shock [Recovered/Resolved]
  - Dyspnoea [Recovered/Resolved]
  - Swollen tongue [Recovered/Resolved]
  - Erythema [Recovered/Resolved]
  - Blood pressure decreased [Recovered/Resolved]

NARRATIVE: CASE EVENT DATE: 20151005
